FAERS Safety Report 9499547 (Version 1)
Quarter: 2013Q3

REPORT INFORMATION
  Report Type: Spontaneous
  Country: US (occurrence: US)
  Receive Date: 20130905
  Receipt Date: 20130905
  Transmission Date: 20140515
  Serious: Yes (Hospitalization)
  Sender: FDA-Public Use
  Company Number: US-BRISTOL-MYERS SQUIBB COMPANY-19248335

PATIENT
  Age: 81 Year
  Sex: Female

DRUGS (3)
  1. COUMADIN [Suspect]
     Dates: start: 2005
  2. CARTIA XT [Concomitant]
     Dosage: CARTIA 240 XT, CARTIA 120 XT
  3. DIGOXIN [Concomitant]

REACTIONS (4)
  - Haemorrhage [Unknown]
  - Large intestine perforation [Unknown]
  - Constipation [Unknown]
  - Pain [Unknown]
